FAERS Safety Report 24721433 (Version 1)
Quarter: 2024Q4

REPORT INFORMATION
  Report Type: Spontaneous
  Country: US (occurrence: US)
  Receive Date: 20241211
  Receipt Date: 20241211
  Transmission Date: 20250115
  Serious: Yes (Other)
  Sender: PFIZER
  Company Number: US-PFIZER INC-202400320211

PATIENT
  Age: 54 Year
  Sex: Female

DRUGS (4)
  1. CIBINQO [Suspect]
     Active Substance: ABROCITINIB
     Indication: Dermatitis atopic
     Dosage: 200 MG PRN
  2. CIBINQO [Suspect]
     Active Substance: ABROCITINIB
     Indication: Pruritus
     Dosage: 200MG TABLET ORAL, 1.0 TABLET, QD (EVERY DAY), 30 DAYS, 30 TABLET (S)
     Route: 048
  3. CIBINQO [Suspect]
     Active Substance: ABROCITINIB
     Indication: Dermatitis
  4. CIBINQO [Suspect]
     Active Substance: ABROCITINIB
     Indication: Neoplasm skin

REACTIONS (2)
  - Immunosuppression [Unknown]
  - Off label use [Unknown]
